FAERS Safety Report 10047027 (Version 1)
Quarter: 2014Q1

REPORT INFORMATION
  Report Type: Spontaneous
  Country: GB (occurrence: None)
  Receive Date: 20140327
  Receipt Date: 20140327
  Transmission Date: 20141002
  Serious: Yes (Life-Threatening, Hospitalization)
  Sender: FDA-Public Use
  Company Number: AUR-APL-2014-03316

PATIENT
  Age: 56 Year
  Sex: Male

DRUGS (9)
  1. FLUCONAZOLE (FLUCONAZOLE) [Suspect]
     Indication: ORAL CANDIDIASIS
     Dosage: 50MG (50MG, 1 IN 1 D) ORAL
     Route: 048
     Dates: start: 20140221, end: 20140224
  2. DAKTARIN (MICONAZOLE) [Suspect]
     Indication: ORAL CANDIDIASIS
     Dosage: 10ML (2.5ML, 4 IN 1 D) ORAL
     Route: 048
     Dates: start: 20140207, end: 20140224
  3. WARFARIN (WARFARIN) [Suspect]
     Indication: ATRIAL FIBRILLATION
  4. BISOPROLOL (BISOPROLOL) [Concomitant]
  5. OMEPRAZOLE (OMEPRAZOLE) [Concomitant]
  6. RAMIPRIL (RAMIPRIL) [Concomitant]
  7. SALBUTAMOL (SALBUTAMOL) [Concomitant]
  8. SYMBICORD (BUDESONIDE W/FORMOTEROL FUMARATE) [Concomitant]
  9. SPIROLACTONE (SPIRONOLACTONE) [Concomitant]

REACTIONS (15)
  - Back pain [None]
  - Pain in extremity [None]
  - Drug effect increased [None]
  - Epistaxis [None]
  - Faeces discoloured [None]
  - Vomiting [None]
  - Aphagia [None]
  - Medication error [None]
  - Drug interaction [None]
  - International normalised ratio increased [None]
  - Renal failure acute [None]
  - Dehydration [None]
  - Gastritis [None]
  - Retroperitoneal haemorrhage [None]
  - Haemoglobin decreased [None]
